FAERS Safety Report 7115351-X (Version None)
Quarter: 2010Q4

REPORT INFORMATION
  Report Type: 
  Country: None (occurrence: None)
  Receive Date: 20101116
  Receipt Date: 20101116
  Transmission Date: 20110411
  Serious: No
  Sender: FDA-Public Use
  Company Number: None

PATIENT
  Age: 2 Year
  Sex: Male

DRUGS (2)
  1. FLUTICASONE PROPIONATE [Suspect]
     Indication: HYPERSENSITIVITY
     Dosage: ONE PUFF TO EACH NARES. DAILY NASAL
     Route: 045
     Dates: start: 20101001
  2. FLONASE [Suspect]

REACTIONS (5)
  - DYSPHAGIA [None]
  - PARANASAL SINUS HYPERSECRETION [None]
  - PRODUCT SUBSTITUTION ISSUE [None]
  - SALIVARY HYPERSECRETION [None]
  - VOMITING [None]
